FAERS Safety Report 4753354-0 (Version None)
Quarter: 2005Q3

REPORT INFORMATION
  Report Type: 
  Country: None (occurrence: None)
  Receive Date: 20050826
  Receipt Date: 20050825
  Transmission Date: 20060218
  Serious: Yes (Life-Threatening, Hospitalization)
  Sender: FDA-Public Use
  Company Number: GB-JNJFOC-20031105063

PATIENT
  Age: 63 Year
  Sex: Male

DRUGS (13)
  1. REMICADE [Suspect]
     Indication: RHEUMATOID ARTHRITIS
     Dosage: 3 MG/KG
     Route: 042
  2. METHOTREXATE [Concomitant]
     Indication: RHEUMATOID ARTHRITIS
     Route: 048
  3. QUINAPRIL [Concomitant]
     Indication: HYPERTENSION
  4. FOLIC ACID [Concomitant]
  5. CELIPROLOL [Concomitant]
  6. BENDROFLUAZIDE [Concomitant]
     Indication: HYPERTENSION
  7. AMLODIPINE [Concomitant]
     Indication: HYPERTENSION
  8. SOLPADOL [Concomitant]
  9. SOLPADOL [Concomitant]
  10. LANSOPRAZOLE [Concomitant]
     Indication: PROPHYLAXIS
  11. ASPIRIN [Concomitant]
  12. SULFASALAZINE [Concomitant]
     Indication: RHEUMATOID ARTHRITIS
  13. CYCLOSPORINE [Concomitant]
     Route: 065

REACTIONS (3)
  - EMPHYSEMA [None]
  - LEFT VENTRICULAR FAILURE [None]
  - PULMONARY FIBROSIS [None]
